FAERS Safety Report 7946775-6 (Version None)
Quarter: 2011Q4

REPORT INFORMATION
  Report Type: 
  Country: None (occurrence: None)
  Receive Date: 20111129
  Receipt Date: 20111122
  Transmission Date: 20120403
  Serious: Yes (Hospitalization)
  Sender: FDA-Public Use
  Company Number: TR-ABBOTT-11P-161-0876791-00

PATIENT
  Age: 17 Year
  Sex: Female
  Weight: 60 kg

DRUGS (1)
  1. TARKA [Suspect]
     Indication: PRODUCT USED FOR UNKNOWN INDICATION
     Dosage: 240/4 MG X13
     Route: 048

REACTIONS (2)
  - SUICIDE ATTEMPT [None]
  - ATRIOVENTRICULAR BLOCK [None]
